FAERS Safety Report 19878081 (Version 1)
Quarter: 2021Q3

REPORT INFORMATION
  Report Type: Spontaneous
  Country: ES (occurrence: ES)
  Receive Date: 20210923
  Receipt Date: 20210923
  Transmission Date: 20211014
  Serious: Yes (Other)
  Sender: FDA-Public Use
  Company Number: NVSC2021ES215175

PATIENT
  Sex: Male
  Weight: 95 kg

DRUGS (8)
  1. PIPERACILLIN/TAZOBACTAM [Concomitant]
     Active Substance: PIPERACILLIN SODIUM\TAZOBACTAM SODIUM
     Indication: RESPIRATORY TRACT INFECTION
     Dosage: 4/0.5 G, Q8H
     Route: 042
  2. GENTAMICIN. [Concomitant]
     Active Substance: GENTAMICIN
     Indication: RESPIRATORY TRACT INFECTION
     Dosage: 200 MG, Q12H
     Route: 065
  3. PREDNISONE. [Concomitant]
     Active Substance: PREDNISONE
     Indication: RESPIRATORY TRACT INFECTION
     Dosage: 10 MG, QD
     Route: 048
  4. CLINDAMYCIN. [Concomitant]
     Active Substance: CLINDAMYCIN
     Indication: RESPIRATORY TRACT INFECTION
     Dosage: 600 MG, Q8H
     Route: 042
  5. AZTREONAM. [Concomitant]
     Active Substance: AZTREONAM
     Indication: RESPIRATORY TRACT INFECTION
     Dosage: 2 G, Q6H
     Route: 042
  6. AMIODARONE [Concomitant]
     Active Substance: AMIODARONE
     Indication: ATRIAL FIBRILLATION
     Dosage: 900 MG, QD, LOADING DOSE
     Route: 042
  7. QUETIAPINE. [Suspect]
     Active Substance: QUETIAPINE
     Indication: DELIRIUM
     Dosage: 25 MG, QD
     Route: 048
  8. AMIODARONE [Concomitant]
     Active Substance: AMIODARONE
     Dosage: 200 MG, QD, MAINTENANCE DOSE
     Route: 048

REACTIONS (2)
  - Product use in unapproved indication [Unknown]
  - Drug reaction with eosinophilia and systemic symptoms [Recovered/Resolved]
